FAERS Safety Report 23608347 (Version 1)
Quarter: 2024Q1

REPORT INFORMATION
  Report Type: Spontaneous
  Country: US (occurrence: US)
  Receive Date: 20240307
  Receipt Date: 20240307
  Transmission Date: 20240410
  Serious: No
  Sender: FDA-Public Use
  Company Number: US-AMGEN-USASP2024045348

PATIENT
  Age: 50 Year
  Sex: Female

DRUGS (3)
  1. TAVNEOS [Suspect]
     Active Substance: AVACOPAN
     Indication: Polyarteritis nodosa
     Dosage: 3 DOSAGE FORM, BID (TAKE 3 CAPSULES (30 MG) BY MOUTH TWICE DAILY WITH FOOD)
     Route: 048
     Dates: start: 20240228
  2. TAVNEOS [Suspect]
     Active Substance: AVACOPAN
     Indication: Off label use
  3. PREDNISONE [Concomitant]
     Active Substance: PREDNISONE
     Dosage: UNK UNK, BID (BEGUN TO SPLIT HER PREDNISONE DOSE ON HER OWN IN THE MORNING AND EVENEING)
     Route: 065

REACTIONS (6)
  - Coeliac artery compression syndrome [Unknown]
  - Insomnia [Unknown]
  - Abdominal pain lower [Unknown]
  - Vascular pain [Unknown]
  - Off label use [Unknown]
  - Drug ineffective [Unknown]

NARRATIVE: CASE EVENT DATE: 20240101
